FAERS Safety Report 20501151 (Version 1)
Quarter: 2022Q1

REPORT INFORMATION
  Report Type: Spontaneous
  Country: US (occurrence: None)
  Receive Date: 20220218
  Receipt Date: 20220218
  Transmission Date: 20220423
  Serious: No
  Sender: FDA-Public Use
  Company Number: None

PATIENT
  Age: 68 Year
  Sex: Female
  Weight: 101.25 kg

DRUGS (22)
  1. SUNITINIB MALATE [Suspect]
     Active Substance: SUNITINIB MALATE
     Indication: Renal cancer
     Dosage: OTHER FREQUENCY : QD FOR 28/42 DAYS;?
     Route: 048
     Dates: start: 20211120, end: 20220217
  2. Acetaminophen 325mg [Concomitant]
  3. ELIQUIS [Concomitant]
     Active Substance: APIXABAN
  4. SEVELAMER CARBONATE [Concomitant]
     Active Substance: SEVELAMER CARBONATE
  5. Levothyroxine 136mcg [Concomitant]
  6. Silver sulfadiazine 1% [Concomitant]
  7. MUPIROCIN [Concomitant]
     Active Substance: MUPIROCIN
  8. Victoza 1.2mg [Concomitant]
  9. Cyanocobalamin 1000mcg [Concomitant]
  10. ISOSORBIDE MONONITRATE [Concomitant]
     Active Substance: ISOSORBIDE MONONITRATE
  11. HYDRALAZINE [Concomitant]
     Active Substance: HYDRALAZINE HYDROCHLORIDE
  12. Xanax 2.5mg [Concomitant]
  13. SERTRALINE [Concomitant]
     Active Substance: SERTRALINE HYDROCHLORIDE
  14. CLINDAMYCIN PHOSPHATE [Concomitant]
     Active Substance: CLINDAMYCIN PHOSPHATE
  15. CALMOSEPTINE [Concomitant]
     Active Substance: MENTHOL\ZINC OXIDE
  16. CLONIDINE HYDROCHLORIDE [Concomitant]
     Active Substance: CLONIDINE HYDROCHLORIDE
  17. ALBUTEROL SULFATE [Concomitant]
     Active Substance: ALBUTEROL SULFATE
  18. CLARITIN [Concomitant]
     Active Substance: LORATADINE
  19. Nephro-Vite 0.8mg [Concomitant]
  20. LEVEMIR [Concomitant]
     Active Substance: INSULIN DETEMIR
  21. Labetalol 200mg [Concomitant]
  22. NOVOLOG [Concomitant]
     Active Substance: INSULIN ASPART

REACTIONS (1)
  - Disease progression [None]

NARRATIVE: CASE EVENT DATE: 20220218
